FAERS Safety Report 23379187 (Version 1)
Quarter: 2024Q1

REPORT INFORMATION
  Report Type: Spontaneous
  Country: CH (occurrence: CH)
  Receive Date: 20240108
  Receipt Date: 20240108
  Transmission Date: 20240409
  Serious: Yes (Hospitalization, Other)
  Sender: FDA-Public Use
  Company Number: CH-FreseniusKabi-FK202400344

PATIENT
  Age: 5 Decade
  Sex: Male

DRUGS (10)
  1. OXALIPLATIN [Suspect]
     Active Substance: OXALIPLATIN
     Indication: Colon cancer
     Dosage: FOLFOX ?DAY 1 - EVERY 2 WEEK, WAS PLANNED FOR 12 COMPLETE CYCLES.
  2. OXALIPLATIN [Suspect]
     Active Substance: OXALIPLATIN
     Dosage: AFTER 16 WEEKS (AT CYCLE 9, DAY 2 OF CHEMOTHERAPY), A DEEP VEIN THROMBOSIS OF THE RIGHT AXILLARY VEI
  3. OXALIPLATIN [Suspect]
     Active Substance: OXALIPLATIN
     Dosage: ONE WEEK AFTER THIS 11TH CYCLE, TG RISES AGAIN. FOLFOX WAS DEFINITIVELY STOPPED AT THE 11TH CYCLE
  4. FLUOROURACIL [Suspect]
     Active Substance: FLUOROURACIL
     Indication: Colon cancer
     Dosage: BOLUS DAY 1?FOLFOX
  5. FLUOROURACIL [Suspect]
     Active Substance: FLUOROURACIL
     Dosage: 2400MG/M2?INFUSION?DAY 1?2
  6. FLUOROURACIL [Suspect]
     Active Substance: FLUOROURACIL
     Dosage: AFTER 16 WEEKS (AT CYCLE 9, DAY 2 OF CHEMOTHERAPY), A DEEP VEIN THROMBOSIS OF THE RIGHT AXILLARY VEI
  7. FLUOROURACIL [Suspect]
     Active Substance: FLUOROURACIL
     Dosage: ONE WEEK AFTER THIS 11TH CYCLE, TG RISES AGAIN. FOLFOX WAS DEFINITIVELY STOPPED AT THE 11TH CYCLE
  8. LEUCOVORIN [Suspect]
     Active Substance: LEUCOVORIN\LEUCOVORIN CALCIUM
     Indication: Colon cancer
     Dosage: DAY 1?FOLFOX
  9. LEUCOVORIN [Suspect]
     Active Substance: LEUCOVORIN\LEUCOVORIN CALCIUM
     Dosage: AFTER 16 WEEKS (AT CYCLE 9, DAY 2 OF CHEMOTHERAPY), A DEEP VEIN THROMBOSIS OF THE RIGHT AXILLARY VEI
  10. LEUCOVORIN [Suspect]
     Active Substance: LEUCOVORIN\LEUCOVORIN CALCIUM
     Dosage: ONE WEEK AFTER THIS 11TH CYCLE, TG RISES AGAIN. FOLFOX WAS DEFINITIVELY STOPPED AT THE 11TH CYCLE

REACTIONS (3)
  - Polyneuropathy [Unknown]
  - Deep vein thrombosis [Unknown]
  - Hypertriglyceridaemia [Recovered/Resolved]
